FAERS Safety Report 4744944-X (Version None)
Quarter: 2005Q3

REPORT INFORMATION
  Report Type: 
  Country: None (occurrence: None)
  Receive Date: 20050812
  Receipt Date: 20050812
  Transmission Date: 20060218
  Serious: Yes (Disabling)
  Sender: FDA-Public Use
  Company Number: None

PATIENT
  Sex: Male
  Weight: 80 kg

DRUGS (3)
  1. ONTAK [Suspect]
     Indication: CHRONIC LEUKAEMIA
     Dosage: 1500 MCG DAILY X 5 DAYS
     Dates: start: 20050412, end: 20050811
  2. ONTAK [Suspect]
     Indication: LYMPHOCYTIC LEUKAEMIA
     Dosage: 1500 MCG DAILY X 5 DAYS
     Dates: start: 20050412, end: 20050811
  3. ONTAK [Suspect]
     Indication: NON-HODGKIN'S LYMPHOMA
     Dosage: 1500 MCG DAILY X 5 DAYS
     Dates: start: 20050412, end: 20050811

REACTIONS (1)
  - BLINDNESS [None]
